FAERS Safety Report 8517878-2 (Version None)
Quarter: 2012Q3

REPORT INFORMATION
  Report Type: 
  Country: None (occurrence: None)
  Receive Date: 20120718
  Receipt Date: 20110628
  Transmission Date: 20120928
  Serious: No
  Sender: FDA-Public Use
  Company Number: US-BRISTOL-MYERS SQUIBB COMPANY-15859655

PATIENT
  Age: 63 Year
  Sex: Female

DRUGS (15)
  1. WARFARIN SODIUM [Suspect]
     Dosage: NEXT 3.5MG
     Dates: start: 20110509
  2. CLONAZEPAM [Concomitant]
  3. GABAPENTIN [Concomitant]
  4. SPIRIVA [Concomitant]
  5. ALBUTEROL [Concomitant]
  6. ACTIMOL [Concomitant]
  7. SIMVASTATIN [Concomitant]
  8. TRAMADOL HCL [Concomitant]
     Indication: HERPES ZOSTER
  9. SINGULAIR [Concomitant]
  10. SYMBICORT [Concomitant]
  11. PREDNISONE [Concomitant]
  12. ADVAIR DISKUS 100/50 [Concomitant]
  13. FLEXERIL [Concomitant]
  14. LISINOPRIL [Concomitant]
  15. ZANTAC [Concomitant]

REACTIONS (4)
  - PAIN [None]
  - TREMOR [None]
  - PRURITUS [None]
  - TEMPERATURE INTOLERANCE [None]
